FAERS Safety Report 25475686 (Version 1)
Quarter: 2025Q2

REPORT INFORMATION
  Report Type: Spontaneous
  Country: EU (occurrence: EU)
  Receive Date: 20250624
  Receipt Date: 20250624
  Transmission Date: 20250717
  Serious: Yes (Hospitalization)
  Sender: BAUSCH AND LOMB
  Company Number: DE-BAUSCHBL-2025BNL009995

PATIENT
  Age: 77 Year
  Sex: Male

DRUGS (4)
  1. DEXAMETHASONE SODIUM PHOSPHATE [Suspect]
     Active Substance: DEXAMETHASONE SODIUM PHOSPHATE
     Indication: Postoperative care
     Dosage: 1 DROP 8 TIMES DAILY, REDUCING BY 2 DROPS EVERY 4 WEEKS, RIGHT EYE
     Route: 047
     Dates: start: 20250401
  2. DEXAMETHASONE SODIUM PHOSPHATE [Suspect]
     Active Substance: DEXAMETHASONE SODIUM PHOSPHATE
     Dosage: 1 DROP 8 TIMES DAILY, REDUCING BY 2 DROPS EVERY 4 WEEKS, LEFT EYE
     Route: 047
     Dates: start: 20250513
  3. DEXAMETHASONE SODIUM PHOSPHATE [Suspect]
     Active Substance: DEXAMETHASONE SODIUM PHOSPHATE
     Dosage: RIGHT EYE TWICE A DAY
     Route: 047
     Dates: start: 20250401
  4. DEXAMETHASONE SODIUM PHOSPHATE [Suspect]
     Active Substance: DEXAMETHASONE SODIUM PHOSPHATE
     Dosage: FOR THE LEFT EYE SIX TIMES A DAY
     Route: 047
     Dates: start: 20250513

REACTIONS (2)
  - Dizziness [Not Recovered/Not Resolved]
  - Hypotension [Recovered/Resolved]

NARRATIVE: CASE EVENT DATE: 20250101
